FAERS Safety Report 13851335 (Version 1)
Quarter: 2017Q3

REPORT INFORMATION
  Report Type: Spontaneous
  Country: JP (occurrence: JP)
  Receive Date: 20170809
  Receipt Date: 20170809
  Transmission Date: 20171127
  Serious: Yes (Other)
  Sender: FDA-Public Use
  Company Number: JP-009507513-1708JPN001219J

PATIENT

DRUGS (3)
  1. TELAPREVIR [Suspect]
     Active Substance: TELAPREVIR
     Dosage: UNK
     Route: 048
  2. PEGINTRON [Suspect]
     Active Substance: PEGINTERFERON ALFA-2B
     Dosage: 60-150?G, QW
     Route: 058
  3. REBETOL [Suspect]
     Active Substance: RIBAVIRIN
     Dosage: 600-1000MG, BID
     Route: 048

REACTIONS (5)
  - Fatigue [Unknown]
  - Anaemia [Unknown]
  - Rash [Unknown]
  - Depression [Unknown]
  - Renal impairment [Unknown]
